FAERS Safety Report 21036365 (Version 1)
Quarter: 2022Q3

REPORT INFORMATION
  Report Type: Spontaneous
  Country: JP (occurrence: JP)
  Receive Date: 20220702
  Receipt Date: 20220702
  Transmission Date: 20221027
  Serious: Yes (Life-Threatening, Hospitalization, Other)
  Sender: FDA-Public Use
  Company Number: JP-MACLEODS PHARMACEUTICALS US LTD-MAC2022036239

PATIENT

DRUGS (10)
  1. LIDOCAINE [Suspect]
     Active Substance: LIDOCAINE
     Indication: Local anaesthesia
     Dosage: 7 MILLILITER, SINGLE (TOTAL, STRENGTH:0.5 %, INJECTION)
     Route: 058
  2. LIDOCAINE [Suspect]
     Active Substance: LIDOCAINE
     Dosage: 10 MILLILITER,INJECTED INTO THE CHEST SKIN INCISION SITE
     Route: 058
  3. BUPIVACAINE [Suspect]
     Active Substance: BUPIVACAINE
     Indication: Postoperative analgesia
     Dosage: 10 MILLILITER, SINGLE
     Route: 058
  4. ROCURONIUM [Concomitant]
     Active Substance: ROCURONIUM BROMIDE
     Indication: General anaesthesia
     Dosage: 35 MILLIGRAM, SINGLE (TOTAL)
     Route: 065
  5. SUGAMMADEX [Concomitant]
     Active Substance: SUGAMMADEX
     Indication: Anaesthesia reversal
     Dosage: UNK
     Route: 065
  6. REMIFENTANIL [Concomitant]
     Active Substance: REMIFENTANIL
     Indication: General anaesthesia
     Dosage: 0.7 MILLIGRAM, Q.H.
     Route: 065
  7. REMIFENTANIL [Concomitant]
     Active Substance: REMIFENTANIL
     Indication: Maintenance of anaesthesia
     Dosage: 0.6 MILLIGRAM, Q.H. (INFUSION)
     Route: 065
  8. EPINEPHRINE [Concomitant]
     Active Substance: EPINEPHRINE
     Indication: Local anaesthesia
     Dosage: UNK (INJECTED INTO THE CHEST SKIN INCISION SITE)
     Route: 058
  9. DESFLURANE [Concomitant]
     Active Substance: DESFLURANE
     Indication: Maintenance of anaesthesia
     Dosage: UNK
     Route: 065
  10. PROPOFOL [Concomitant]
     Active Substance: PROPOFOL
     Indication: General anaesthesia
     Dosage: 60 MILLIGRAM, SINGLE (TOTAL)
     Route: 065

REACTIONS (1)
  - Brain stem syndrome [Recovered/Resolved]
